FAERS Safety Report 14029864 (Version 1)
Quarter: 2017Q3

REPORT INFORMATION
  Report Type: Spontaneous
  Country: US (occurrence: US)
  Receive Date: 20170930
  Receipt Date: 20170930
  Transmission Date: 20171128
  Serious: Yes (Other)
  Sender: FDA-Public Use
  Company Number: US-SA-2017SA111083

PATIENT
  Age: 45 Year
  Sex: Female

DRUGS (2)
  1. EFFEXOR [Concomitant]
     Active Substance: VENLAFAXINE HYDROCHLORIDE
     Indication: DEPRESSION
  2. AUBAGIO [Suspect]
     Active Substance: TERIFLUNOMIDE
     Indication: MULTIPLE SCLEROSIS
     Route: 048

REACTIONS (9)
  - Multiple sclerosis relapse [Unknown]
  - Balance disorder [Unknown]
  - Fatigue [Unknown]
  - Drug ineffective [Unknown]
  - Burning sensation [Unknown]
  - Pain [Unknown]
  - Fall [Unknown]
  - Depression [Unknown]
  - Muscle spasms [Unknown]
